FAERS Safety Report 5879282-5 (Version None)
Quarter: 2008Q3

REPORT INFORMATION
  Report Type: 
  Country: None (occurrence: None)
  Receive Date: 20080912
  Receipt Date: 20080109
  Transmission Date: 20090109
  Serious: No
  Sender: FDA-Public Use
  Company Number: US-BAYER-200831555NA

PATIENT
  Age: 48 Year
  Sex: Male

DRUGS (1)
  1. AVELOX [Suspect]
     Indication: BRONCHITIS
     Route: 048
     Dates: start: 20071221, end: 20071230

REACTIONS (2)
  - BACK PAIN [None]
  - BODY TEMPERATURE DECREASED [None]
